FAERS Safety Report 7893510-6 (Version None)
Quarter: 2011Q4

REPORT INFORMATION
  Report Type: 
  Country: None (occurrence: None)
  Receive Date: 20111104
  Receipt Date: 20111101
  Transmission Date: 20120403
  Serious: Yes (Other)
  Sender: FDA-Public Use
  Company Number: US-PFIZER INC-2011186301

PATIENT
  Sex: Female

DRUGS (1)
  1. DEPO-PROVERA [Suspect]
     Indication: CONTRACEPTION
     Dosage: 150 MG, UNK
     Route: 030
     Dates: start: 20050201, end: 20060101

REACTIONS (5)
  - INFERTILITY [None]
  - OLIGOMENORRHOEA [None]
  - MENORRHAGIA [None]
  - PAIN [None]
  - AMENORRHOEA [None]
